FAERS Safety Report 6502468-3 (Version None)
Quarter: 2009Q4

REPORT INFORMATION
  Report Type: 
  Country: None (occurrence: None)
  Receive Date: 20091207
  Receipt Date: 20091123
  Transmission Date: 20100525
  Serious: Yes (Other)
  Sender: FDA-Public Use
  Company Number: WAES 0911USA04738

PATIENT
  Sex: Female

DRUGS (1)
  1. DECADRON [Suspect]
     Indication: ACUTE LYMPHOCYTIC LEUKAEMIA
     Dosage: PO
     Route: 048

REACTIONS (1)
  - SYSTEMIC CANDIDA [None]
